FAERS Safety Report 17820844 (Version 2)
Quarter: 2020Q2

REPORT INFORMATION
  Report Type: Spontaneous
  Country: CN (occurrence: CN)
  Receive Date: 20200525
  Receipt Date: 20200611
  Transmission Date: 20200714
  Serious: Yes (Other)
  Sender: FDA-Public Use
  Company Number: CN-ROCHE-2604378

PATIENT
  Age: 57 Year
  Sex: Male

DRUGS (5)
  1. CETUXIMAB. [Concomitant]
     Active Substance: CETUXIMAB
  2. IRINOTECAN [Concomitant]
     Active Substance: IRINOTECAN
  3. OXALIPLATIN. [Concomitant]
     Active Substance: OXALIPLATIN
  4. XELODA [Suspect]
     Active Substance: CAPECITABINE
     Indication: RECTAL CANCER
     Route: 048
     Dates: start: 20190101
  5. AVASTIN [Suspect]
     Active Substance: BEVACIZUMAB
     Indication: RECTAL CANCER
     Dosage: DAY1
     Route: 065
     Dates: start: 20200101

REACTIONS (4)
  - Urinary retention [Unknown]
  - Cholelithiasis [Unknown]
  - Bone marrow disorder [Unknown]
  - Pain [Unknown]

NARRATIVE: CASE EVENT DATE: 2019
